FAERS Safety Report 15545321 (Version 4)
Quarter: 2018Q4

REPORT INFORMATION
  Report Type: Spontaneous
  Country: US (occurrence: US)
  Receive Date: 20181024
  Receipt Date: 20181227
  Transmission Date: 20190205
  Serious: No
  Sender: FDA-Public Use
  Company Number: US-PFIZER INC-2018429287

PATIENT
  Age: 71 Year
  Sex: Male
  Weight: 70.31 kg

DRUGS (2)
  1. TRIAZOLAM. [Suspect]
     Active Substance: TRIAZOLAM
     Dosage: 2 DF, DAILY BEFORE BED
     Dates: start: 20180907
  2. TRIAZOLAM. [Suspect]
     Active Substance: TRIAZOLAM
     Indication: INSOMNIA
     Dosage: 0.5 MG, AS NEEDED (0.25 MG TABLETS 2 TABLETS BY MOUTH AT BEDTIME AS NEEDED) (TWO TABLETS BEFORE BED)
     Route: 048
     Dates: start: 1984, end: 20170729

REACTIONS (3)
  - Drug ineffective [Unknown]
  - Malaise [Unknown]
  - Tendonitis [Not Recovered/Not Resolved]

NARRATIVE: CASE EVENT DATE: 20180907
